FAERS Safety Report 15111469 (Version 1)
Quarter: 2018Q3

REPORT INFORMATION
  Report Type: Spontaneous
  Country: US (occurrence: US)
  Receive Date: 20180705
  Receipt Date: 20180705
  Transmission Date: 20181010
  Serious: Yes (Death)
  Sender: FDA-Public Use
  Company Number: US-PFIZER INC-2018159473

PATIENT
  Sex: Female

DRUGS (1)
  1. IBRANCE [Suspect]
     Active Substance: PALBOCICLIB
     Indication: NEOPLASM MALIGNANT
     Dosage: 100 MG, CYCLIC (1 CAPSULE DAILY FOR 21 CONSECUTIVE DAYS FOLLOWED BY 7 DAYS OFF TREATMENT)
     Route: 048
     Dates: start: 20171130

REACTIONS (1)
  - Death [Fatal]

NARRATIVE: CASE EVENT DATE: 20180213
